FAERS Safety Report 4445632-X (Version None)
Quarter: 2004Q3

REPORT INFORMATION
  Report Type: 
  Country: None (occurrence: None)
  Receive Date: 20040910
  Receipt Date: 20040901
  Transmission Date: 20050211
  Serious: Yes (Other)
  Sender: FDA-Public Use
  Company Number: CA-JNJFOC-20040901108

PATIENT
  Age: 22 Year
  Sex: Female

DRUGS (1)
  1. MICRONOR [Suspect]
     Indication: CONTRACEPTION
     Route: 049
     Dates: start: 20040830, end: 20040901

REACTIONS (5)
  - CONVULSION [None]
  - DIZZINESS [None]
  - FATIGUE [None]
  - HYPERHIDROSIS [None]
  - LOSS OF CONSCIOUSNESS [None]
